FAERS Safety Report 13939967 (Version 1)
Quarter: 2017Q3

REPORT INFORMATION
  Report Type: Spontaneous
  Country: IT (occurrence: IT)
  Receive Date: 20170906
  Receipt Date: 20170906
  Transmission Date: 20171127
  Serious: Yes (Hospitalization, Other)
  Sender: FDA-Public Use
  Company Number: PHHY2017IT129177

PATIENT
  Age: 42 Year
  Sex: Female

DRUGS (2)
  1. VOLTAREN [Suspect]
     Active Substance: DICLOFENAC SODIUM
     Indication: DRUG USE DISORDER
     Dosage: 12 DF, UNK (TOTAL)
     Route: 048
     Dates: start: 20170828
  2. OKI [Suspect]
     Active Substance: KETOPROFEN LYSINE
     Indication: PRODUCT USED FOR UNKNOWN INDICATION
     Dosage: 4 DF, UNK (TOTAL)
     Route: 048
     Dates: start: 20170828

REACTIONS (5)
  - Product use in unapproved indication [Unknown]
  - Overdose [Unknown]
  - Intentional self-injury [Unknown]
  - Drug abuse [Recovered/Resolved]
  - Depression [Unknown]

NARRATIVE: CASE EVENT DATE: 20170828
